FAERS Safety Report 5301761-X (Version None)
Quarter: 2007Q1

REPORT INFORMATION
  Report Type: 
  Country: None (occurrence: None)
  Receive Date: 20070201
  Receipt Date: 20061213
  Transmission Date: 20070707
  Serious: No
  Sender: FDA-Public Use
  Company Number: 2006PV026876

PATIENT
  Age: 61 Year
  Sex: Male
  Weight: 132.9039 kg

DRUGS (4)
  1. BYETTA [Suspect]
     Indication: DIABETES MELLITUS NON-INSULIN-DEPENDENT
     Dosage: SEE IMAGE
     Route: 058
     Dates: start: 20060801, end: 20060901
  2. BYETTA [Suspect]
     Indication: DIABETES MELLITUS NON-INSULIN-DEPENDENT
     Dosage: SEE IMAGE
     Route: 058
     Dates: start: 20060901
  3. GLIMEPIRIDE [Concomitant]
  4. POTASSIUM ACETATE [Concomitant]

REACTIONS (7)
  - ANOREXIA [None]
  - BLOOD GLUCOSE DECREASED [None]
  - BLOOD POTASSIUM DECREASED [None]
  - HYPERHIDROSIS [None]
  - INJECTION SITE PAIN [None]
  - MYALGIA [None]
  - WEIGHT DECREASED [None]
